FAERS Safety Report 16599239 (Version 1)
Quarter: 2019Q3

REPORT INFORMATION
  Report Type: Spontaneous
  Country: JP (occurrence: JP)
  Receive Date: 20190719
  Receipt Date: 20190719
  Transmission Date: 20191004
  Serious: Yes (Death)
  Sender: FDA-Public Use
  Company Number: JP-BAUSCH-BL-2019-020151

PATIENT
  Age: 70 Year
  Sex: Female

DRUGS (7)
  1. IGURATIMOD [Suspect]
     Active Substance: IGURATIMOD
     Indication: CONDITION AGGRAVATED
  2. PREDNISOLONE. [Suspect]
     Active Substance: PREDNISOLONE
     Dosage: DOSE TAPERED AND STOPPED
     Route: 048
     Dates: end: 2006
  3. ABATACEPT [Suspect]
     Active Substance: ABATACEPT
     Indication: POLYARTHRITIS
     Dosage: MONOTHERAPY, 500 MG/MONTH
     Route: 065
     Dates: start: 201111
  4. CYCLOPHOSPHAMIDE. [Suspect]
     Active Substance: CYCLOPHOSPHAMIDE
     Indication: INTERSTITIAL LUNG DISEASE
     Route: 065
     Dates: start: 2003, end: 2005
  5. PREDNISOLONE. [Suspect]
     Active Substance: PREDNISOLONE
     Indication: INTERSTITIAL LUNG DISEASE
     Route: 048
     Dates: start: 2003
  6. ABATACEPT [Suspect]
     Active Substance: ABATACEPT
     Indication: CONDITION AGGRAVATED
     Dosage: 125 MG/WEEK
     Route: 065
     Dates: end: 2015
  7. IGURATIMOD [Suspect]
     Active Substance: IGURATIMOD
     Indication: POLYARTHRITIS
     Route: 065
     Dates: start: 201412, end: 2015

REACTIONS (1)
  - Adult T-cell lymphoma/leukaemia [Fatal]

NARRATIVE: CASE EVENT DATE: 201506
